FAERS Safety Report 17778098 (Version 1)
Quarter: 2020Q2

REPORT INFORMATION
  Report Type: Report from Study
  Country: GB (occurrence: GB)
  Receive Date: 20200513
  Receipt Date: 20200513
  Transmission Date: 20200714
  Serious: Yes (Other)
  Sender: FDA-Public Use
  Company Number: GB-SAMSUNG BIOEPIS-SB-2020-15835

PATIENT
  Sex: Female

DRUGS (1)
  1. IMRALDI [Suspect]
     Active Substance: ADALIMUMAB
     Indication: PSORIATIC ARTHROPATHY
     Route: 058

REACTIONS (6)
  - Poor quality sleep [Not Recovered/Not Resolved]
  - Asthma [Unknown]
  - Fibromyalgia [Unknown]
  - Fatigue [Unknown]
  - COVID-19 [Unknown]
  - Diabetes mellitus [Unknown]
